FAERS Safety Report 18374900 (Version 3)
Quarter: 2020Q4

REPORT INFORMATION
  Report Type: Spontaneous
  Country: US (occurrence: US)
  Receive Date: 20201012
  Receipt Date: 20201013
  Transmission Date: 20210114
  Serious: Yes (Death, Hospitalization, Other)
  Sender: FDA-Public Use
  Company Number: US-CELGENEUS-USA-20201002015

PATIENT
  Age: 74 Year
  Sex: Male
  Weight: 74.91 kg

DRUGS (9)
  1. VIDAZA [Suspect]
     Active Substance: AZACITIDINE
     Indication: ACUTE MYELOID LEUKAEMIA
     Route: 065
     Dates: start: 2020
  2. HYDROXYUREA. [Concomitant]
     Active Substance: HYDROXYUREA
     Indication: NEOPLASM MALIGNANT
     Route: 065
  3. LEVAQUIN [Concomitant]
     Active Substance: LEVOFLOXACIN
     Indication: INFECTION
     Route: 065
  4. ALLOPURINOL. [Concomitant]
     Active Substance: ALLOPURINOL
     Indication: BLOOD URIC ACID
     Route: 065
  5. VENCLEXTA [Suspect]
     Active Substance: VENETOCLAX
     Indication: ACUTE MYELOID LEUKAEMIA
     Dosage: 400 MILLIGRAM
     Route: 048
     Dates: start: 20200905, end: 20200914
  6. POSACONAZOLE [Suspect]
     Active Substance: POSACONAZOLE
     Indication: PROPHYLAXIS
     Route: 048
     Dates: start: 2020
  7. ACYCLOVIR. [Concomitant]
     Active Substance: ACYCLOVIR
     Indication: PROPHYLAXIS
     Route: 065
  8. VENCLEXTA [Suspect]
     Active Substance: VENETOCLAX
     Dosage: 100 MILLIGRAM
     Route: 048
     Dates: start: 20200915, end: 20200919
  9. PROTONIX [Concomitant]
     Active Substance: PANTOPRAZOLE SODIUM
     Indication: GASTROOESOPHAGEAL REFLUX DISEASE
     Route: 065

REACTIONS (16)
  - Myxoid liposarcoma [Unknown]
  - Foreign body in gastrointestinal tract [Unknown]
  - Urine uric acid abnormal [Unknown]
  - Renal failure [Fatal]
  - Platelet count decreased [Unknown]
  - Blood creatinine increased [Unknown]
  - Blood pressure decreased [Unknown]
  - Pneumonia [Fatal]
  - Pulmonary oedema [Unknown]
  - Pulmonary mass [Unknown]
  - Anaemia [Unknown]
  - White blood cell count decreased [Unknown]
  - Tachycardia [Unknown]
  - Urinary retention [Unknown]
  - Oxygen saturation decreased [Unknown]
  - Oxygen saturation decreased [Unknown]

NARRATIVE: CASE EVENT DATE: 2020
